FAERS Safety Report 6309835-1 (Version None)
Quarter: 2009Q3

REPORT INFORMATION
  Report Type: 
  Country: None (occurrence: None)
  Receive Date: 20090814
  Receipt Date: 20090804
  Transmission Date: 20100115
  Serious: Yes (Other)
  Sender: FDA-Public Use
  Company Number: US-PFIZER INC-2009192744

PATIENT
  Sex: Female
  Weight: 56.689 kg

DRUGS (3)
  1. REVATIO [Suspect]
     Indication: PULMONARY HYPERTENSION
     Dosage: UNK
     Dates: start: 20081001
  2. OXYGEN [Concomitant]
  3. XANAX [Concomitant]
     Dosage: UNK

REACTIONS (12)
  - ANXIETY [None]
  - DRUG INEFFECTIVE [None]
  - DYSGEUSIA [None]
  - DYSPNOEA [None]
  - FALL [None]
  - FATIGUE [None]
  - FEELING HOT [None]
  - GAIT DISTURBANCE [None]
  - HYPOPHAGIA [None]
  - MALAISE [None]
  - URINARY TRACT INFECTION [None]
  - WEIGHT DECREASED [None]
